FAERS Safety Report 11413431 (Version 1)
Quarter: 2015Q3

REPORT INFORMATION
  Report Type: Spontaneous
  Country: US (occurrence: US)
  Receive Date: 20150821
  Receipt Date: 20150821
  Transmission Date: 20151125
  Serious: No
  Sender: FDA-Public Use
  Company Number: US-ELI_LILLY_AND_COMPANY-US201105003494

PATIENT
  Sex: Female

DRUGS (2)
  1. NOVOLIN R [Concomitant]
     Active Substance: INSULIN HUMAN
     Dosage: 8 U, TID
  2. HUMULIN N [Suspect]
     Active Substance: INSULIN HUMAN
     Indication: DIABETES MELLITUS
     Dosage: 15 U, BID
     Dates: start: 20110508

REACTIONS (4)
  - Drug dose omission [Unknown]
  - Asthenia [Unknown]
  - Injection site haemorrhage [Unknown]
  - Blood glucose increased [Unknown]
